FAERS Safety Report 7265369-1 (Version None)
Quarter: 2011Q1

REPORT INFORMATION
  Report Type: 
  Country: None (occurrence: None)
  Receive Date: 20110131
  Receipt Date: 20110121
  Transmission Date: 20110831
  Serious: Yes (Other)
  Sender: FDA-Public Use
  Company Number: US-ROCHE-714523

PATIENT
  Sex: Male
  Weight: 81.6 kg

DRUGS (1)
  1. ACCUTANE [Suspect]
     Indication: ACNE
     Route: 065
     Dates: start: 20020211, end: 20020605

REACTIONS (9)
  - STRESS [None]
  - COLITIS ULCERATIVE [None]
  - PROCTOCOLITIS [None]
  - CHEILITIS [None]
  - NEPHROLITHIASIS [None]
  - DRY SKIN [None]
  - BLOOD CHOLESTEROL INCREASED [None]
  - INFLAMMATORY BOWEL DISEASE [None]
  - ARTHRALGIA [None]
